FAERS Safety Report 17869832 (Version 3)
Quarter: 2020Q2

REPORT INFORMATION
  Report Type: Spontaneous
  Country: ES (occurrence: ES)
  Receive Date: 20200608
  Receipt Date: 20200625
  Transmission Date: 20200714
  Serious: Yes (Other)
  Sender: FDA-Public Use
  Company Number: ES-ROCHE-2610365

PATIENT
  Age: 39 Year
  Sex: Female

DRUGS (12)
  1. TACROLIMUS. [Interacting]
     Active Substance: TACROLIMUS
     Indication: MIXED CONNECTIVE TISSUE DISEASE
     Route: 065
  2. AZATHIOPRINE. [Interacting]
     Active Substance: AZATHIOPRINE
     Indication: MIXED CONNECTIVE TISSUE DISEASE
  3. OPSUMIT [Concomitant]
     Active Substance: MACITENTAN
  4. RITUXIMAB. [Interacting]
     Active Substance: RITUXIMAB
     Indication: MIXED CONNECTIVE TISSUE DISEASE
  5. CYCLOPHOSPHAMIDE. [Concomitant]
     Active Substance: CYCLOPHOSPHAMIDE
     Route: 050
  6. RITUXIMAB. [Interacting]
     Active Substance: RITUXIMAB
     Indication: IMMUNOSUPPRESSANT DRUG THERAPY
     Route: 065
  7. BOSENTAN. [Interacting]
     Active Substance: BOSENTAN
     Indication: MIXED CONNECTIVE TISSUE DISEASE
     Route: 048
  8. MYCOPHENOLATE MOFETIL. [Interacting]
     Active Substance: MYCOPHENOLATE MOFETIL
     Indication: MIXED CONNECTIVE TISSUE DISEASE
  9. AZATHIOPRINE. [Interacting]
     Active Substance: AZATHIOPRINE
     Indication: IMMUNOSUPPRESSANT DRUG THERAPY
     Route: 065
  10. MACITENTAN [Suspect]
     Active Substance: MACITENTAN
     Indication: SKIN ULCER
     Route: 065
  11. MYCOPHENOLATE MOFETIL. [Suspect]
     Active Substance: MYCOPHENOLATE MOFETIL
     Indication: IMMUNOSUPPRESSANT DRUG THERAPY
     Route: 065
  12. ALPROSTADIL. [Concomitant]
     Active Substance: ALPROSTADIL
     Indication: RAYNAUD^S PHENOMENON

REACTIONS (4)
  - Haematotoxicity [Unknown]
  - Hypersensitivity [Unknown]
  - Enterocolitis [Unknown]
  - Drug interaction [Unknown]
